FAERS Safety Report 6648117-5 (Version None)
Quarter: 2010Q1

REPORT INFORMATION
  Report Type: 
  Country: None (occurrence: None)
  Receive Date: 20100324
  Receipt Date: 20100309
  Transmission Date: 20100710
  Serious: Yes (Other)
  Sender: FDA-Public Use
  Company Number: GB-BAYER-201015616GPV

PATIENT
  Age: 46 Year
  Sex: Female

DRUGS (4)
  1. FLUDARABINE PHOSPHATE [Suspect]
     Indication: COLORECTAL CANCER
     Dosage: 25 MG/M2/KG
     Route: 042
     Dates: start: 20091105, end: 20091109
  2. MFEZ [Suspect]
     Indication: COLORECTAL CANCER
     Dosage: 1.32 10E10 T-CELLS
     Route: 042
     Dates: start: 20091110, end: 20091110
  3. CYCLOPHOSPHAMIDE [Suspect]
     Indication: COLORECTAL CANCER
     Dosage: 60MG/M2/KG; DOSE 5100MG
     Route: 042
     Dates: start: 20091103, end: 20091104
  4. PROLEUKIN [Suspect]
     Indication: COLORECTAL CANCER
     Dosage: 7 DOSES OF IV BOLUS INJECTION OF 24 IU , LATER 8 IU
     Route: 040
     Dates: start: 20091111, end: 20091112

REACTIONS (5)
  - DYSPNOEA [None]
  - HYPOTENSION [None]
  - OXYGEN SATURATION DECREASED [None]
  - RESPIRATORY RATE INCREASED [None]
  - TACHYCARDIA [None]
